FAERS Safety Report 6537867-7 (Version None)
Quarter: 2009Q4

REPORT INFORMATION
  Report Type: 
  Country: None (occurrence: None)
  Receive Date: 20091229
  Receipt Date: 20091112
  Transmission Date: 20100525
  Serious: No
  Sender: FDA-Public Use
  Company Number: 1000010081

PATIENT
  Age: 90 Year
  Sex: Female

DRUGS (11)
  1. BYSTOLIC [Suspect]
     Indication: HYPERTENSION
     Dosage: 10 MG (5 MG,2 IN 1 D),ORAL
     Route: 048
     Dates: start: 20090801
  2. CLONIDINE [Concomitant]
  3. CARDURA [Concomitant]
  4. NORVASC [Concomitant]
  5. LASIX [Concomitant]
  6. VITAMINS [Concomitant]
  7. HYDROCORTISONE [Concomitant]
  8. NEXIUM [Concomitant]
  9. OSCAL [Concomitant]
  10. FISH OIL [Concomitant]
  11. LOMOTIL [Concomitant]

REACTIONS (1)
  - TONGUE DISCOLOURATION [None]
